FAERS Safety Report 17577145 (Version 1)
Quarter: 2020Q1

REPORT INFORMATION
  Report Type: Spontaneous
  Country: PL (occurrence: PL)
  Receive Date: 20200324
  Receipt Date: 20200324
  Transmission Date: 20200409
  Serious: Yes (Other)
  Sender: FDA-Public Use
  Company Number: PL-BAUSCH-BL-2020-008807

PATIENT
  Age: 58 Year
  Sex: Male
  Weight: 80 kg

DRUGS (5)
  1. DEXAVEN [Suspect]
     Active Substance: DEXAMETHASONE
     Indication: COLON CANCER
     Route: 042
     Dates: start: 20170412, end: 20170614
  2. CISPLATINE EBEWE [Suspect]
     Active Substance: CISPLATIN
     Indication: COLON CANCER
     Route: 042
     Dates: start: 20170412, end: 20170614
  3. SANDOSTATIN [Suspect]
     Active Substance: OCTREOTIDE ACETATE
     Indication: COLON CANCER
     Route: 042
     Dates: start: 20170412, end: 20170614
  4. ETOPOSIDE EBEWE [Suspect]
     Active Substance: ETOPOSIDE
     Indication: COLON CANCER
     Route: 042
     Dates: start: 20170412, end: 20170614
  5. ONDANSETRON [Suspect]
     Active Substance: ONDANSETRON
     Indication: COLON CANCER
     Route: 042
     Dates: start: 20170412, end: 20170614

REACTIONS (1)
  - Neutropenia [Unknown]

NARRATIVE: CASE EVENT DATE: 20170703
